FAERS Safety Report 10878388 (Version 1)
Quarter: 2015Q1

REPORT INFORMATION
  Report Type: Spontaneous
  Country: US (occurrence: None)
  Receive Date: 20150224
  Receipt Date: 20150224
  Transmission Date: 20150721
  Serious: No
  Sender: FDA-Public Use
  Company Number: None

PATIENT
  Age: 51 Year
  Sex: Female

DRUGS (1)
  1. ESTRADIOL. [Suspect]
     Active Substance: ESTRADIOL
     Dosage: 1 PATCH TWICE A WEEK
     Route: 061
     Dates: start: 20150204, end: 20150220

REACTIONS (7)
  - Product substitution issue [None]
  - Dizziness [None]
  - Burning sensation [None]
  - Product adhesion issue [None]
  - Feeling abnormal [None]
  - Rash [None]
  - Dermal absorption impaired [None]

NARRATIVE: CASE EVENT DATE: 20150218
